FAERS Safety Report 8425290-X (Version None)
Quarter: 2012Q2

REPORT INFORMATION
  Report Type: 
  Country: None (occurrence: None)
  Receive Date: 20120605
  Receipt Date: 20120525
  Transmission Date: 20120825
  Serious: Yes (Hospitalization)
  Sender: FDA-Public Use
  Company Number: 2012000132

PATIENT
  Age: 53 Year
  Sex: Male

DRUGS (3)
  1. ATORVASTATIN CALCIUM [Suspect]
     Indication: PRODUCT USED FOR UNKNOWN INDICATION
     Dosage: ORAL
     Route: 048
     Dates: end: 20100310
  2. ACEON [Suspect]
     Indication: PRODUCT USED FOR UNKNOWN INDICATION
     Dosage: ORAL
     Route: 048
     Dates: end: 20100101
  3. RHEUMATREX [Concomitant]

REACTIONS (5)
  - ORGANISING PNEUMONIA [None]
  - PLEURISY [None]
  - PLEURAL EFFUSION [None]
  - ATELECTASIS [None]
  - LUNG DISORDER [None]
